FAERS Safety Report 6501286-X (Version None)
Quarter: 2009Q4

REPORT INFORMATION
  Report Type: 
  Country: None (occurrence: None)
  Receive Date: 20091127
  Receipt Date: 20091021
  Transmission Date: 20100525
  Serious: No
  Sender: FDA-Public Use
  Company Number: 002186

PATIENT
  Sex: Female
  Weight: 63.6 kg

DRUGS (4)
  1. LACOSAMIDE [Suspect]
     Indication: CONVULSION
     Dosage: 100 MG BID ORAL
     Route: 048
     Dates: start: 20090901
  2. TRILEPTAL [Suspect]
  3. ZONEGRAN [Concomitant]
  4. LAMICTAL [Concomitant]

REACTIONS (1)
  - NAUSEA [None]
